FAERS Safety Report 17302403 (Version 12)
Quarter: 2021Q1

REPORT INFORMATION
  Report Type: Spontaneous
  Country: GB (occurrence: GB)
  Receive Date: 20200122
  Receipt Date: 20210121
  Transmission Date: 20210419
  Serious: Yes (Other)
  Sender: FDA-Public Use
  Company Number: GB-MYLANLABS-2019M1114875

PATIENT
  Age: 46 Year
  Sex: Female

DRUGS (2)
  1. CLOZARIL [Suspect]
     Active Substance: CLOZAPINE
     Dosage: UNK
     Route: 048
     Dates: start: 20200116
  2. CLOZARIL [Suspect]
     Active Substance: CLOZAPINE
     Indication: SCHIZOPHRENIA
     Dosage: UNK
     Route: 048
     Dates: start: 20180917, end: 20200115

REACTIONS (11)
  - Brain neoplasm [Unknown]
  - Medulloblastoma [Unknown]
  - Leukocytosis [Recovered/Resolved]
  - Platelet count increased [Recovered/Resolved]
  - Neutrophilia [Recovered/Resolved]
  - Malaise [Unknown]
  - Neutropenia [Recovered/Resolved]
  - Platelet count decreased [Recovered/Resolved]
  - Metastases to spine [Unknown]
  - White blood cell count decreased [Recovered/Resolved]
  - Stress [Unknown]

NARRATIVE: CASE EVENT DATE: 20191118
